FAERS Safety Report 10047178 (Version 2)
Quarter: 2014Q1

REPORT INFORMATION
  Report Type: Spontaneous
  Country: US (occurrence: US)
  Receive Date: 20140331
  Receipt Date: 20140331
  Transmission Date: 20141002
  Serious: No
  Sender: FDA-Public Use
  Company Number: US-MYLANLABS-2013S1016578

PATIENT
  Age: 58 Year
  Sex: Female

DRUGS (12)
  1. FENTANYL TRANSDERMAL SYSTEM [Suspect]
     Indication: PAIN
     Dosage: CHANGE PATCH EVERY 3 DAYS.
     Route: 062
     Dates: start: 201205, end: 2013
  2. FENTANYL TRANSDERMAL SYSTEM [Suspect]
     Indication: PAIN
     Dosage: CHANGE Q3D
     Route: 062
     Dates: start: 2013
  3. CLONIDINE [Concomitant]
     Indication: BLOOD PRESSURE INCREASED
     Dosage: TAKING 1 + 1/2 OF THE 0.2 MG TABLETS DAILY.
     Route: 048
  4. LISINOPRIL [Concomitant]
     Indication: BLOOD PRESSURE INCREASED
     Route: 048
  5. TRAZODONE [Concomitant]
     Indication: INSOMNIA
     Route: 048
  6. VITAMIN C [Concomitant]
  7. SALMON OIL [Concomitant]
     Route: 048
  8. OMEPRAZOLE [Concomitant]
     Indication: GASTRITIS
     Route: 048
  9. XANAX [Concomitant]
     Route: 048
  10. FLEXERIL [Concomitant]
     Dosage: PRN
     Route: 048
  11. HYDROCODONE/APAP [Concomitant]
     Indication: BREAKTHROUGH PAIN
     Dosage: STRENGTH 7.5MG/325 MG
     Route: 048
  12. RESTORIL [Concomitant]
     Indication: INSOMNIA
     Route: 048

REACTIONS (7)
  - Drug ineffective [Recovered/Resolved]
  - Pain [Recovered/Resolved]
  - Nausea [Recovered/Resolved]
  - Nervousness [Recovered/Resolved]
  - Chills [Recovered/Resolved]
  - Application site pruritus [Recovered/Resolved]
  - Drug screen negative [Recovered/Resolved]
